FAERS Safety Report 15468373 (Version 2)
Quarter: 2018Q4

REPORT INFORMATION
  Report Type: Spontaneous
  Country: JP (occurrence: JP)
  Receive Date: 20181005
  Receipt Date: 20181112
  Transmission Date: 20190204
  Serious: Yes (Hospitalization, Disabling)
  Sender: FDA-Public Use
  Company Number: PHJP2018JP017163

PATIENT
  Age: 77 Year
  Sex: Male

DRUGS (2)
  1. BAKTAR [Suspect]
     Active Substance: SULFAMETHOXAZOLE\TRIMETHOPRIM
     Indication: CYSTITIS
     Dosage: 2 DF, BID
     Route: 048
     Dates: start: 20180815, end: 20180905
  2. COSENTYX [Suspect]
     Active Substance: SECUKINUMAB
     Indication: PSORIASIS
     Dosage: 300 MG, PER ADMINISTRATION
     Route: 058
     Dates: start: 20171019, end: 20180809

REACTIONS (2)
  - Renal impairment [Recovering/Resolving]
  - Bladder mass [Unknown]

NARRATIVE: CASE EVENT DATE: 20180903
